FAERS Safety Report 7737293-9 (Version None)
Quarter: 2011Q3

REPORT INFORMATION
  Report Type: 
  Country: None (occurrence: None)
  Receive Date: 20110902
  Receipt Date: 20110818
  Transmission Date: 20111222
  Serious: Yes (Other)
  Sender: FDA-Public Use
  Company Number: 2011ES0244

PATIENT
  Age: 9 Year
  Sex: Male

DRUGS (6)
  1. VITAMIN D [Concomitant]
  2. CALCIUM CARBONATE [Concomitant]
  3. KINERET [Suspect]
     Indication: HISTIOCYTOSIS HAEMATOPHAGIC
     Dosage: 100 MG (100 MG,1 IN 1 D) SUBCUTANEOUS
     Route: 058
     Dates: start: 20110701
  4. KINERET [Suspect]
     Indication: JUVENILE ARTHRITIS
     Dosage: 100 MG (100 MG,1 IN 1 D) SUBCUTANEOUS
     Route: 058
     Dates: start: 20110701
  5. PREDNISONE [Concomitant]
  6. OMEPRAZOLE [Concomitant]

REACTIONS (2)
  - ASPARTATE AMINOTRANSFERASE INCREASED [None]
  - ALANINE AMINOTRANSFERASE INCREASED [None]
